FAERS Safety Report 6490610-2 (Version None)
Quarter: 2009Q4

REPORT INFORMATION
  Report Type: 
  Country: None (occurrence: None)
  Receive Date: 20091124
  Receipt Date: 20090612
  Transmission Date: 20100525
  Serious: Yes (Other)
  Sender: FDA-Public Use
  Company Number: 285006

PATIENT
  Age: 64 Year
  Sex: Female

DRUGS (2)
  1. HERCEPTIN [Suspect]
     Indication: BREAST CANCER
     Dates: start: 20090501
  2. GEMZAR [Suspect]
     Indication: BREAST CANCER

REACTIONS (3)
  - INTERSTITIAL LUNG DISEASE [None]
  - OBLITERATIVE BRONCHIOLITIS [None]
  - ORGANISING PNEUMONIA [None]
